FAERS Safety Report 10253740 (Version 1)
Quarter: 2014Q2

REPORT INFORMATION
  Report Type: Spontaneous
  Country: RS (occurrence: RS)
  Receive Date: 20140623
  Receipt Date: 20140623
  Transmission Date: 20141212
  Serious: Yes (Hospitalization)
  Sender: FDA-Public Use
  Company Number: RS-TEVA-413156ISR

PATIENT
  Age: 64 Year
  Sex: Male

DRUGS (2)
  1. DIUVER [Suspect]
     Indication: HYPERTENSION
     Route: 048
  2. DIUVER [Suspect]
     Route: 048

REACTIONS (3)
  - Heart rate abnormal [Recovered/Resolved]
  - Arrhythmia [Recovered/Resolved]
  - Hypertension [Not Recovered/Not Resolved]
